FAERS Safety Report 22594861 (Version 1)
Quarter: 2023Q2

REPORT INFORMATION
  Report Type: Spontaneous
  Country: DE (occurrence: DE)
  Receive Date: 20230613
  Receipt Date: 20230613
  Transmission Date: 20230721
  Serious: Yes (Death, Hospitalization, Disabling, Other)
  Sender: FDA-Public Use
  Company Number: DE-AMGEN-DEUNI2023069852

PATIENT
  Age: 56 Year
  Sex: Male
  Weight: 72 kg

DRUGS (10)
  1. DEXAMETHASONE [Suspect]
     Active Substance: DEXAMETHASONE
     Indication: Product used for unknown indication
     Dosage: 20 MG
     Route: 065
     Dates: start: 20230322, end: 20230412
  2. DARATUMUMAB [Suspect]
     Active Substance: DARATUMUMAB
     Indication: Product used for unknown indication
     Dosage: 8 MG
     Route: 065
     Dates: start: 20230322, end: 20230323
  3. DARATUMUMAB [Suspect]
     Active Substance: DARATUMUMAB
     Dosage: 16 MG
     Route: 065
     Dates: start: 20230329, end: 20230411
  4. CARFILZOMIB [Suspect]
     Active Substance: CARFILZOMIB
     Indication: Plasma cell myeloma
     Dosage: 20 MG/M2 (UNIT-VIAL - LYOPHILIZED)
     Route: 042
     Dates: start: 20230329, end: 20230412
  5. ZOLEDRONIC ACID [Concomitant]
     Active Substance: ZOLEDRONIC ACID
     Indication: Prophylaxis
     Dosage: 4 MG, QMO
     Route: 065
     Dates: start: 20220713
  6. ENOXAPARIN [Concomitant]
     Active Substance: ENOXAPARIN
     Indication: Prophylaxis
     Dosage: 4000 IU, QD
     Route: 065
     Dates: start: 20230322
  7. ACYCLOVIR [Concomitant]
     Active Substance: ACYCLOVIR
     Indication: Prophylaxis
     Dosage: 400 MG, QD
     Route: 065
     Dates: start: 20230322
  8. FOLIC ACID [Concomitant]
     Active Substance: FOLIC ACID
     Indication: Prophylaxis
     Dosage: 15 MG, QW, (5 MILLIGRAM, 3 TIMES/WK (THREE TIMES PER WEEK))
     Route: 065
     Dates: start: 20230322
  9. CIPROFLOXACIN [Concomitant]
     Active Substance: CIPROFLOXACIN
     Indication: Prophylaxis
     Dosage: 250 MG, QD
     Route: 065
     Dates: start: 20230322
  10. SULFAMETHOXAZOLE\TRIMETHOPRIM [Concomitant]
     Active Substance: SULFAMETHOXAZOLE\TRIMETHOPRIM
     Indication: Prophylaxis
     Dosage: 2880 MG, QW, (960 MILLIGRAM, 3 TIMES/WK (THREE TIMES PER WEEK))
     Route: 065
     Dates: start: 20230322

REACTIONS (2)
  - Plasma cell myeloma [Fatal]
  - Transaminases increased [Fatal]

NARRATIVE: CASE EVENT DATE: 20230417
